FAERS Safety Report 22915618 (Version 2)
Quarter: 2023Q4

REPORT INFORMATION
  Report Type: Spontaneous
  Country: ES (occurrence: ES)
  Receive Date: 20230907
  Receipt Date: 20231213
  Transmission Date: 20240109
  Serious: Yes (Hospitalization)
  Sender: FDA-Public Use
  Company Number: None

PATIENT
  Age: 59 Year
  Sex: Female

DRUGS (19)
  1. CLONAZEPAM [Interacting]
     Active Substance: CLONAZEPAM
     Indication: Depression
     Dosage: 60 TABLETS
     Route: 048
     Dates: start: 2023, end: 20230629
  2. OXYCODONE HYDROCHLORIDE [Interacting]
     Active Substance: OXYCODONE HYDROCHLORIDE
     Indication: Juvenile idiopathic arthritis
     Dosage: AS NECESSARY, 1-0-0 AND IF NEEDED 1-0-1 (POSSIBLE MEDICATION ERROR DUE TO UNCONTROLLED INTAKE)
     Route: 048
     Dates: start: 20220225, end: 20230626
  3. PRIALT [Interacting]
     Active Substance: ZICONOTIDE ACETATE
     Indication: Juvenile idiopathic arthritis
     Route: 037
     Dates: start: 20221214, end: 20230131
  4. PRIALT [Interacting]
     Active Substance: ZICONOTIDE ACETATE
     Indication: Juvenile idiopathic arthritis
     Dosage: DAILY DOSE: 2 MICROGRAM
     Route: 037
     Dates: start: 20230201, end: 20230331
  5. PRIALT [Interacting]
     Active Substance: ZICONOTIDE ACETATE
     Indication: Juvenile idiopathic arthritis
     Dosage: DAILY DOSE: 1 MILLIGRAM
     Route: 037
     Dates: start: 20230331, end: 20230530
  6. PRIALT [Interacting]
     Active Substance: ZICONOTIDE ACETATE
     Indication: Juvenile idiopathic arthritis
     Dosage: DAILY DOSE: 2.16 MICROGRAM
     Route: 037
     Dates: start: 20230531, end: 20230615
  7. PRIALT [Interacting]
     Active Substance: ZICONOTIDE ACETATE
     Indication: Juvenile idiopathic arthritis
     Dosage: DAILY DOSE: 1.48 MICROGRAM
     Route: 037
     Dates: start: 20230616, end: 20230629
  8. MORPHINE [Interacting]
     Active Substance: MORPHINE
     Indication: Juvenile idiopathic arthritis
     Dosage: DAILY DOSE: 0.95 MILLIGRAM
     Route: 037
     Dates: start: 20230331, end: 20230615
  9. MORPHINE [Interacting]
     Active Substance: MORPHINE
     Indication: Juvenile idiopathic arthritis
     Dosage: DAILY DOSE: 1.8 MILLIGRAM
     Dates: start: 20230616
  10. LORMETAZEPAM [Interacting]
     Active Substance: LORMETAZEPAM
     Indication: Depression
     Dosage: DAILY DOSE: 2 MILLIGRAM
     Route: 048
     Dates: start: 20230610, end: 20230626
  11. ROSUVASTATIN [Concomitant]
     Active Substance: ROSUVASTATIN
  12. HYDROCHLOROTHIAZIDE\LISINOPRIL [Concomitant]
     Active Substance: HYDROCHLOROTHIAZIDE\LISINOPRIL
  13. METHYLPREDNISOLONE [Concomitant]
     Active Substance: METHYLPREDNISOLONE
  14. DESVENLAFAXINE [Concomitant]
     Active Substance: DESVENLAFAXINE
  15. DIAZEPAM [Concomitant]
     Active Substance: DIAZEPAM
  16. OMEPRAZOLE [Concomitant]
     Active Substance: OMEPRAZOLE
  17. METHOTREXATE [Concomitant]
     Active Substance: METHOTREXATE
  18. FOLIC ACID [Concomitant]
     Active Substance: FOLIC ACID
  19. CLOMETHIAZOLE [Concomitant]
     Active Substance: CLOMETHIAZOLE

REACTIONS (2)
  - Toxic encephalopathy [Recovered/Resolved]
  - Confusional state [Recovered/Resolved]

NARRATIVE: CASE EVENT DATE: 20230616
